FAERS Safety Report 17921754 (Version 1)
Quarter: 2020Q2

REPORT INFORMATION
  Report Type: Spontaneous
  Country: US (occurrence: US)
  Receive Date: 20200622
  Receipt Date: 20200622
  Transmission Date: 20200714
  Serious: No
  Sender: FDA-Public Use
  Company Number: US-ALLERGAN-1929854US

PATIENT
  Sex: Female
  Weight: 88.9 kg

DRUGS (2)
  1. SULFACETAMIDE UNK [Suspect]
     Active Substance: SULFACETAMIDE
     Indication: PRODUCT USED FOR UNKNOWN INDICATION
  2. BACITRACIN. [Suspect]
     Active Substance: BACITRACIN
     Indication: PRODUCT USED FOR UNKNOWN INDICATION

REACTIONS (3)
  - Drug hypersensitivity [Unknown]
  - Erythema [Unknown]
  - Burning sensation [Unknown]
